FAERS Safety Report 5498463-6 (Version None)
Quarter: 2007Q4

REPORT INFORMATION
  Report Type: 
  Country: None (occurrence: None)
  Receive Date: 20071024
  Receipt Date: 20071012
  Transmission Date: 20080405
  Serious: Yes (Hospitalization)
  Sender: FDA-Public Use
  Company Number: 238755K07USA

PATIENT
  Age: 33 Year
  Sex: Female

DRUGS (1)
  1. REBIF [Suspect]
     Indication: MULTIPLE SCLEROSIS
     Dosage: 3 IN 1 WEEKS, SUBCUTANEOUS
     Route: 058
     Dates: start: 20070509, end: 20070915

REACTIONS (2)
  - HEPATIC ENZYME INCREASED [None]
  - MALIGNANT MELANOMA [None]
